FAERS Safety Report 17241784 (Version 1)
Quarter: 2020Q1

REPORT INFORMATION
  Report Type: Spontaneous
  Country: US (occurrence: US)
  Receive Date: 20200107
  Receipt Date: 20200107
  Transmission Date: 20200409
  Serious: Yes (Hospitalization, Other)
  Sender: FDA-Public Use
  Company Number: US-BECTON DICKINSON-2019BDN00433

PATIENT
  Age: 45 Year
  Sex: Female
  Weight: 74.83 kg

DRUGS (1)
  1. CHLORAPREP [Suspect]
     Active Substance: CHLORHEXIDINE GLUCONATE\ISOPROPYL ALCOHOL
     Indication: INFECTION PROPHYLAXIS
     Route: 061

REACTIONS (7)
  - Hysterectomy [Unknown]
  - Application site rash [Not Recovered/Not Resolved]
  - Central venous catheterisation [Not Recovered/Not Resolved]
  - Lymphadenectomy [Unknown]
  - Hodgkin^s disease [Recovering/Resolving]
  - Vein collapse [Recovering/Resolving]
  - Hypersensitivity [Not Recovered/Not Resolved]

NARRATIVE: CASE EVENT DATE: 2016
